FAERS Safety Report 21313559 (Version 1)
Quarter: 2022Q3

REPORT INFORMATION
  Report Type: Spontaneous
  Country: US (occurrence: US)
  Receive Date: 20220909
  Receipt Date: 20220909
  Transmission Date: 20221026
  Serious: No
  Sender: FDA-Public Use
  Company Number: US-ASTELLAS-2022US017892

PATIENT
  Sex: Male

DRUGS (2)
  1. XTANDI [Suspect]
     Active Substance: ENZALUTAMIDE
     Indication: Prostate cancer
     Dosage: UNK, UNKNOWN FREQ.
     Route: 065
  2. RUBRACA [Suspect]
     Active Substance: RUCAPARIB CAMSYLATE
     Indication: Prostate cancer
     Route: 048
     Dates: start: 20220225

REACTIONS (5)
  - Nail discolouration [Not Recovered/Not Resolved]
  - Tongue disorder [Unknown]
  - Dry skin [Not Recovered/Not Resolved]
  - Erythema [Unknown]
  - Skin exfoliation [Unknown]
